FAERS Safety Report 5166931-2 (Version None)
Quarter: 2006Q4

REPORT INFORMATION
  Report Type: 
  Country: None (occurrence: None)
  Receive Date: 20061207
  Receipt Date: 20061129
  Transmission Date: 20070319
  Serious: Yes (Disabling)
  Sender: FDA-Public Use
  Company Number: US-ELI_LILLY_AND_COMPANY-US200611005484

PATIENT
  Sex: Female

DRUGS (2)
  1. HUMULIN N [Suspect]
     Dates: start: 19860101
  2. HUMULIN R [Suspect]
     Dates: start: 19860101

REACTIONS (4)
  - BLOOD GLUCOSE FLUCTUATION [None]
  - DIABETES MELLITUS INADEQUATE CONTROL [None]
  - FALL [None]
  - SPINAL FRACTURE [None]
